FAERS Safety Report 9669851 (Version 2)
Quarter: 2013Q4

REPORT INFORMATION
  Report Type: Spontaneous
  Country: US (occurrence: US)
  Receive Date: 20131105
  Receipt Date: 20131105
  Transmission Date: 20140711
  Serious: Yes (Hospitalization, Other)
  Sender: FDA-Public Use
  Company Number: US-GILEAD-2013-0085962

PATIENT
  Age: 60 Year
  Sex: Female
  Weight: 51 kg

DRUGS (8)
  1. LETAIRIS [Suspect]
     Indication: PULMONARY HYPERTENSION
     Dosage: 10 MG, QD
     Route: 048
     Dates: start: 20100818
  2. LETAIRIS [Suspect]
     Indication: SARCOIDOSIS
  3. ADCIRCA [Concomitant]
  4. KCL [Concomitant]
  5. TORSEMIDE [Concomitant]
  6. PREDNISONE [Concomitant]
  7. QVAR [Concomitant]
  8. ALBUTEROL                          /00139501/ [Concomitant]

REACTIONS (3)
  - Chest pain [Recovering/Resolving]
  - Pulmonary hypertension [Recovering/Resolving]
  - Dyspnoea [Recovering/Resolving]
